FAERS Safety Report 23769998 (Version 2)
Quarter: 2025Q2

REPORT INFORMATION
  Report Type: Report from Study
  Country: IT (occurrence: IT)
  Receive Date: 20240422
  Receipt Date: 20250429
  Transmission Date: 20250716
  Serious: Yes (Other)
  Sender: SK LIFE SCIENCE
  Company Number: IT-ACRAF SpA-2024-034136

PATIENT

DRUGS (4)
  1. XCOPRI [Suspect]
     Active Substance: CENOBAMATE
     Indication: Epilepsy
     Dosage: 200 MG (200 MG,1 IN 1 D)
     Route: 048
     Dates: start: 20231018
  2. XCOPRI [Suspect]
     Active Substance: CENOBAMATE
     Route: 065
     Dates: end: 20250416
  3. VALPROIC ACID [Concomitant]
     Active Substance: VALPROIC ACID
     Indication: Epilepsy
     Dosage: 950 MG (950 MG,1 IN 1 D)
     Route: 065
     Dates: start: 20140114
  4. FYCOMPA [Concomitant]
     Active Substance: PERAMPANEL
     Indication: Epilepsy
     Dosage: 8 MG (8 MG,1 IN 1 D)
     Route: 065
     Dates: start: 20230301

REACTIONS (2)
  - Neutropenia [Unknown]
  - Somnolence [Recovered/Resolved]

NARRATIVE: CASE EVENT DATE: 20241003
